FAERS Safety Report 24557930 (Version 2)
Quarter: 2024Q4

REPORT INFORMATION
  Report Type: Spontaneous
  Country: DE (occurrence: DE)
  Receive Date: 20241028
  Receipt Date: 20241129
  Transmission Date: 20250115
  Serious: Yes (Death)
  Sender: BEIGENE
  Company Number: DE-BEIGENE-BGN-2024-017051

PATIENT

DRUGS (1)
  1. TEVIMBRA [Suspect]
     Active Substance: TISLELIZUMAB-JSGR
     Indication: Product used for unknown indication

REACTIONS (1)
  - Death [Fatal]
